FAERS Safety Report 22618787 (Version 6)
Quarter: 2023Q4

REPORT INFORMATION
  Report Type: Report from Study
  Country: CN (occurrence: CN)
  Receive Date: 20230620
  Receipt Date: 20231123
  Transmission Date: 20240110
  Serious: Yes (Hospitalization, Other)
  Sender: FDA-Public Use
  Company Number: CN-TAKEDA-2023TUS041959

PATIENT
  Age: 57 Year
  Sex: Female
  Weight: 58 kg

DRUGS (14)
  1. BRENTUXIMAB VEDOTIN [Suspect]
     Active Substance: BRENTUXIMAB VEDOTIN
     Indication: Angioimmunoblastic T-cell lymphoma
     Dosage: 100 MILLIGRAM, Q3WEEKS
     Route: 041
     Dates: start: 20230314
  2. TUCIDINOSTAT [Suspect]
     Active Substance: TUCIDINOSTAT
     Indication: Lymphoma
     Dosage: 20 MILLIGRAM, Q2WEEKS
     Route: 048
     Dates: start: 20230314
  3. TUCIDINOSTAT [Suspect]
     Active Substance: TUCIDINOSTAT
     Indication: Product used for unknown indication
     Dosage: UNK
     Route: 065
  4. LEUCOGEN [Concomitant]
     Active Substance: LEUCOGEN
     Indication: White blood cell count decreased
     Dosage: 20 MILLIGRAM, TID
     Route: 048
     Dates: start: 20230315
  5. FLUCONAZOLE [Concomitant]
     Active Substance: FLUCONAZOLE
     Indication: Antifungal prophylaxis
     Dosage: 150 MILLIGRAM, QD
     Route: 048
     Dates: start: 20230314, end: 20230315
  6. BROMHEXINE HYDROCHLORIDE [Concomitant]
     Active Substance: BROMHEXINE HYDROCHLORIDE
     Indication: Productive cough
     Dosage: 4 MILLIGRAM, BID
     Route: 042
     Dates: start: 20230314, end: 20230315
  7. SODIUM BICARBONATE [Concomitant]
     Active Substance: SODIUM BICARBONATE
     Indication: Therapeutic gargle
     Dosage: 250 MILLILITER
     Route: 065
     Dates: start: 20230314, end: 20230314
  8. DEXAMETHASONE SODIUM PHOSPHATE [Concomitant]
     Active Substance: DEXAMETHASONE SODIUM PHOSPHATE
     Indication: Prophylaxis
     Dosage: 10 MILLIGRAM, Q3WEEKS
     Route: 042
     Dates: start: 20230314, end: 20230407
  9. PANTOPRAZOLE SODIUM [Concomitant]
     Active Substance: PANTOPRAZOLE SODIUM
     Indication: Antiemetic supportive care
     Dosage: 40 MILLIGRAM, Q3WEEKS
     Route: 042
     Dates: start: 20230314, end: 20230407
  10. PANTOPRAZOLE SODIUM [Concomitant]
     Active Substance: PANTOPRAZOLE SODIUM
     Indication: Antacid therapy
  11. PROMETHAZINE HYDROCHLORIDE [Concomitant]
     Active Substance: PROMETHAZINE HYDROCHLORIDE
     Indication: Prophylaxis
     Dosage: 12.5 MILLIGRAM, Q3WEEKS
     Route: 042
     Dates: start: 20230314, end: 20230407
  12. AMBROXOL HYDROCHLORIDE\CLENBUTEROL [Concomitant]
     Active Substance: AMBROXOL HYDROCHLORIDE\CLENBUTEROL
     Indication: Cough
     Dosage: 5 MILLILITER, BID
     Route: 048
     Dates: start: 20230314, end: 2023
  13. CEFUROXIME AXETIL [Concomitant]
     Active Substance: CEFUROXIME AXETIL
     Indication: Infection prophylaxis
     Dosage: 0.25 GRAM, BID
     Route: 048
     Dates: start: 20230315, end: 202303
  14. BICYCLOL [Concomitant]
     Active Substance: BICYCLOL
     Indication: Prophylaxis
     Dosage: 25 MILLIGRAM, TID
     Route: 048
     Dates: start: 20230315, end: 202303

REACTIONS (5)
  - Myelosuppression [Not Recovered/Not Resolved]
  - Febrile infection [Recovered/Resolved]
  - Respiratory tract infection [Recovered/Resolved]
  - Platelet count decreased [Recovering/Resolving]
  - Off label use [Unknown]

NARRATIVE: CASE EVENT DATE: 20230314
